FAERS Safety Report 7572204-0 (Version None)
Quarter: 2011Q2

REPORT INFORMATION
  Report Type: 
  Country: None (occurrence: None)
  Receive Date: 20110624
  Receipt Date: 20110613
  Transmission Date: 20111010
  Serious: Yes (Other)
  Sender: FDA-Public Use
  Company Number: PHFR2011GB03251

PATIENT
  Sex: Female

DRUGS (7)
  1. CLOZAPINE [Suspect]
     Indication: SCHIZOPHRENIA
     Dosage: 12.5 MG, QMO
     Route: 048
     Dates: start: 20110211
  2. LANSOPRAZOLE [Concomitant]
     Dosage: 30 MG, QD
     Route: 048
     Dates: start: 20110217
  3. CAVILON [Concomitant]
     Route: 061
  4. FORTISIP [Concomitant]
     Route: 048
  5. AMOROLFINE [Concomitant]
     Dosage: UNK
     Dates: start: 20110321
  6. CLOZAPINE [Suspect]
     Dosage: 62.5 MG, QD
     Route: 048
  7. CITALOPRAM HYDROBROMIDE [Concomitant]
     Dosage: 20 MG, QD
     Route: 048

REACTIONS (6)
  - NEUROLEPTIC MALIGNANT SYNDROME [None]
  - HYPERTENSION [None]
  - TACHYCARDIA [None]
  - MUSCLE RIGIDITY [None]
  - INCONTINENCE [None]
  - FLUSHING [None]
